FAERS Safety Report 6082598-3 (Version None)
Quarter: 2009Q1

REPORT INFORMATION
  Report Type: 
  Country: None (occurrence: None)
  Receive Date: 20090202
  Receipt Date: 20071217
  Transmission Date: 20090719
  Serious: Yes (Hospitalization)
  Sender: FDA-Public Use
  Company Number: 268385

PATIENT
  Age: 15 Year
  Sex: Female

DRUGS (2)
  1. NOVOLOG [Suspect]
     Indication: TYPE 1 DIABETES MELLITUS
     Dosage: 2.1 BASED BOLUS WITH MEALS, SUBCUTAN.-PUMP
     Dates: start: 20070101
  2. NOVOLOG [Suspect]

REACTIONS (1)
  - BLOOD GLUCOSE INCREASED [None]
